FAERS Safety Report 24360735 (Version 1)
Quarter: 2024Q3

REPORT INFORMATION
  Report Type: Spontaneous
  Country: BR (occurrence: BR)
  Receive Date: 20240925
  Receipt Date: 20240925
  Transmission Date: 20241017
  Serious: Yes (Other)
  Sender: ROCHE
  Company Number: BR-ROCHE-10000084390

PATIENT
  Age: 67 Year
  Sex: Female

DRUGS (1)
  1. TECENTRIQ [Suspect]
     Active Substance: ATEZOLIZUMAB
     Indication: Non-small cell lung cancer metastatic
     Route: 042
     Dates: start: 20210823

REACTIONS (4)
  - Pneumonitis [Unknown]
  - Cough [Unknown]
  - Dyspnoea [Unknown]
  - Pulmonary toxicity [Unknown]

NARRATIVE: CASE EVENT DATE: 20220901
